FAERS Safety Report 24799342 (Version 2)
Quarter: 2025Q1

REPORT INFORMATION
  Report Type: Report from Study
  Country: CA (occurrence: CA)
  Receive Date: 20250102
  Receipt Date: 20250114
  Transmission Date: 20250409
  Serious: Yes (Hospitalization, Other)
  Sender: CELLTRION
  Company Number: CA-CELLTRION INC.-2024CA032670

PATIENT

DRUGS (4)
  1. ADALIMUMAB-AATY [Suspect]
     Active Substance: ADALIMUMAB-AATY
     Indication: Crohn^s disease
     Route: 058
     Dates: start: 20240817
  2. ADALIMUMAB-AATY [Suspect]
     Active Substance: ADALIMUMAB-AATY
     Indication: Ankylosing spondylitis
     Dosage: 40 MG, WEEKLY
     Route: 058
  3. ADALIMUMAB-AATY [Suspect]
     Active Substance: ADALIMUMAB-AATY
     Indication: Colitis ulcerative
  4. IRON [Concomitant]
     Active Substance: IRON

REACTIONS (6)
  - Crohn^s disease [Unknown]
  - Aphthous ulcer [Unknown]
  - Localised infection [Unknown]
  - Arthralgia [Unknown]
  - Therapy non-responder [Unknown]
  - Intentional product use issue [Unknown]
